FAERS Safety Report 6807599-6 (Version None)
Quarter: 2010Q2

REPORT INFORMATION
  Report Type: 
  Country: None (occurrence: None)
  Receive Date: 20100629
  Receipt Date: 20081118
  Transmission Date: 20101027
  Serious: No
  Sender: FDA-Public Use
  Company Number: US-PFIZER INC-2008088594

PATIENT
  Sex: Female
  Weight: 72.7 kg

DRUGS (3)
  1. BEXTRA [Suspect]
     Indication: BACK PAIN
     Route: 048
     Dates: start: 20031121, end: 20041119
  2. TYLENOL [Concomitant]
  3. CLONAZEPAM [Concomitant]
     Indication: RESTLESS LEGS SYNDROME

REACTIONS (3)
  - DYSPNOEA [None]
  - GAIT DISTURBANCE [None]
  - HERPES ZOSTER [None]
